FAERS Safety Report 9379101 (Version 1)
Quarter: 2013Q3

REPORT INFORMATION
  Report Type: Report from Study
  Country: CA (occurrence: CA)
  Receive Date: 20130702
  Receipt Date: 20130702
  Transmission Date: 20140515
  Serious: Yes (Death)
  Sender: FDA-Public Use
  Company Number: PHHY2013CA067357

PATIENT
  Age: 72 Year
  Sex: Female

DRUGS (2)
  1. SANDOSTATIN LAR [Suspect]
     Indication: OVARIAN NEOPLASM
     Dosage: 20 MG, EVERY 4 WEEKS
     Route: 030
     Dates: start: 20130605
  2. SANDOSTATIN LAR [Suspect]
     Indication: GASTROINTESTINAL CARCINOMA

REACTIONS (1)
  - Death [Fatal]
